FAERS Safety Report 15663298 (Version 1)
Quarter: 2018Q4

REPORT INFORMATION
  Report Type: Report from Study
  Country: None (occurrence: US)
  Receive Date: 20181128
  Receipt Date: 20181128
  Transmission Date: 20190205
  Serious: Yes (Other)
  Sender: FDA-Public Use
  Company Number: US-ABBVIE-18S-163-2563432-00

PATIENT
  Age: 54 Year
  Sex: Male

DRUGS (1)
  1. ANDROGEL [Suspect]
     Active Substance: TESTOSTERONE
     Indication: PRODUCT USED FOR UNKNOWN INDICATION
     Route: 065

REACTIONS (8)
  - Hypertensive heart disease [Unknown]
  - Type 2 diabetes mellitus [Not Recovered/Not Resolved]
  - Rotator cuff syndrome [Unknown]
  - Hypertension [Not Recovered/Not Resolved]
  - Obesity [Not Recovered/Not Resolved]
  - Erectile dysfunction [Not Recovered/Not Resolved]
  - Arthritis [Unknown]
  - Back pain [Unknown]

NARRATIVE: CASE EVENT DATE: 20150928
